FAERS Safety Report 8849130 (Version 1)
Quarter: 2012Q4

REPORT INFORMATION
  Report Type: Spontaneous
  Country: BR (occurrence: None)
  Receive Date: 20121016
  Receipt Date: 20121016
  Transmission Date: 20130627
  Serious: Yes (Other)
  Sender: FDA-Public Use
  Company Number: DSA_60177_2012

PATIENT
  Sex: Male

DRUGS (1)
  1. ELIDEL [Suspect]
     Indication: DERMATITIS ATOPIC
     Dosage: (DF)
     Route: 061
     Dates: start: 2006, end: 2008

REACTIONS (3)
  - Skin exfoliation [None]
  - Skin discolouration [None]
  - Skin disorder [None]
